FAERS Safety Report 24125761 (Version 1)
Quarter: 2024Q3

REPORT INFORMATION
  Report Type: Spontaneous
  Country: US (occurrence: US)
  Receive Date: 20240723
  Receipt Date: 20240723
  Transmission Date: 20241016
  Serious: No
  Sender: STEMLINE THERAPEUTICS
  Company Number: US-Stemline Therapeutics, Inc.-2024ST003026

PATIENT
  Age: 73 Year
  Sex: Female

DRUGS (1)
  1. ORSERDU [Suspect]
     Active Substance: ELACESTRANT
     Indication: Product used for unknown indication
     Dosage: 345 MG DAILY
     Route: 048
     Dates: start: 20240423

REACTIONS (10)
  - Product size issue [Unknown]
  - Product use complaint [Unknown]
  - Pain [Unknown]
  - Loss of personal independence in daily activities [Unknown]
  - Feeling hot [Unknown]
  - Pruritus [Unknown]
  - Hot flush [Unknown]
  - Nausea [Unknown]
  - Pain in extremity [Unknown]
  - Fatigue [Unknown]

NARRATIVE: CASE EVENT DATE: 20240510
